FAERS Safety Report 15238058 (Version 6)
Quarter: 2019Q4

REPORT INFORMATION
  Report Type: Spontaneous
  Country: US (occurrence: US)
  Receive Date: 20180803
  Receipt Date: 20191118
  Transmission Date: 20200122
  Serious: Yes (Hospitalization, Other)
  Sender: FDA-Public Use
  Company Number: US-PFIZER INC-2018313008

PATIENT
  Age: 77 Year
  Sex: Female
  Weight: 61 kg

DRUGS (5)
  1. LYRICA [Suspect]
     Active Substance: PREGABALIN
     Indication: NEUROPATHY PERIPHERAL
     Dosage: UNK, DAILY (TAKE 200 A DAY)
  2. LYRICA [Suspect]
     Active Substance: PREGABALIN
     Dosage: 200 MG, 2X/DAY (1:00 AM; 1:00 PM)
  3. LYRICA [Suspect]
     Active Substance: PREGABALIN
     Dosage: 50 MG, 4X/DAY
     Route: 048
  4. LYRICA [Suspect]
     Active Substance: PREGABALIN
     Dosage: 150 MG, DAILY (50 MG IN MORNING AND 100 MG AT NIGHT)
     Route: 048
  5. LYRICA [Suspect]
     Active Substance: PREGABALIN
     Indication: DIABETIC NEUROPATHY
     Dosage: 150 MG, DAILY (50MG CAPSULES, ONE CAPSULE IN THE MORNING AND TWO CAPSULES AT NIGHT)
     Dates: start: 1995, end: 201704

REACTIONS (9)
  - Pain [Unknown]
  - Ligament sprain [Recovering/Resolving]
  - Fall [Recovering/Resolving]
  - Viral infection [Recovered/Resolved]
  - Hip fracture [Recovered/Resolved with Sequelae]
  - Femur fracture [Recovered/Resolved with Sequelae]
  - Spinal fracture [Unknown]
  - Prescription drug used without a prescription [Unknown]
  - Body height decreased [Unknown]

NARRATIVE: CASE EVENT DATE: 201704
